FAERS Safety Report 14623457 (Version 1)
Quarter: 2018Q1

REPORT INFORMATION
  Report Type: Spontaneous
  Country: US (occurrence: US)
  Receive Date: 20180312
  Receipt Date: 20180312
  Transmission Date: 20180509
  Serious: No
  Sender: FDA-Public Use
  Company Number: US-009507513-1803USA003241

PATIENT
  Sex: Female

DRUGS (1)
  1. CLARINEX [Suspect]
     Active Substance: DESLORATADINE
     Dosage: 5 MG, QD
     Route: 048

REACTIONS (5)
  - Epistaxis [Unknown]
  - Respiratory tract congestion [Unknown]
  - Product availability issue [Unknown]
  - Oropharyngeal pain [Unknown]
  - Upper respiratory tract congestion [Unknown]
